FAERS Safety Report 17698369 (Version 2)
Quarter: 2020Q2

REPORT INFORMATION
  Report Type: Spontaneous
  Country: US (occurrence: US)
  Receive Date: 20200423
  Receipt Date: 20200522
  Transmission Date: 20200714
  Serious: No
  Sender: FDA-Public Use
  Company Number: US-PFIZER INC-2020159707

PATIENT
  Sex: Female

DRUGS (3)
  1. CELEBREX [Interacting]
     Active Substance: CELECOXIB
     Indication: UPPER LIMB FRACTURE
  2. CELEBREX [Suspect]
     Active Substance: CELECOXIB
     Indication: PAIN
     Dosage: UNK
  3. ELIQUIS [Interacting]
     Active Substance: APIXABAN
     Dosage: UNK

REACTIONS (1)
  - Drug interaction [Unknown]
